FAERS Safety Report 6631173-8 (Version None)
Quarter: 2010Q1

REPORT INFORMATION
  Report Type: 
  Country: None (occurrence: None)
  Receive Date: 20100309
  Receipt Date: 20100114
  Transmission Date: 20100710
  Serious: Yes (Other)
  Sender: FDA-Public Use
  Company Number: 004867

PATIENT

DRUGS (1)
  1. KEPPRA XR [Suspect]

REACTIONS (3)
  - DEPRESSION [None]
  - INDIFFERENCE [None]
  - SUICIDAL BEHAVIOUR [None]
